FAERS Safety Report 26003811 (Version 1)
Quarter: 2025Q4

REPORT INFORMATION
  Report Type: Spontaneous
  Country: CO (occurrence: CO)
  Receive Date: 20251106
  Receipt Date: 20251106
  Transmission Date: 20260117
  Serious: Yes (Other)
  Sender: NOVARTIS
  Company Number: CO-002147023-NVSC2025CO168299

PATIENT
  Age: 23 Year
  Sex: Male

DRUGS (1)
  1. ARTEMETHER\LUMEFANTRINE [Suspect]
     Active Substance: ARTEMETHER\LUMEFANTRINE
     Indication: Plasmodium falciparum infection
     Dosage: UNK
     Route: 048

REACTIONS (2)
  - Haemolysis [Recovering/Resolving]
  - Normochromic anaemia [Recovering/Resolving]
